FAERS Safety Report 5153022-X (Version None)
Quarter: 2006Q4

REPORT INFORMATION
  Report Type: 
  Country: None (occurrence: None)
  Receive Date: 20061117
  Receipt Date: 20061027
  Transmission Date: 20070319
  Serious: Yes (Other)
  Sender: FDA-Public Use
  Company Number: JP-AVENTIS-200613377JP

PATIENT
  Age: 74 Year
  Sex: Female

DRUGS (1)
  1. TAXOTERE [Suspect]

REACTIONS (1)
  - PANCREATITIS ACUTE [None]
